FAERS Safety Report 4594078-2 (Version None)
Quarter: 2005Q1

REPORT INFORMATION
  Report Type: 
  Country: None (occurrence: None)
  Receive Date: 20050301
  Receipt Date: 20041118
  Transmission Date: 20050727
  Serious: Yes (Hospitalization)
  Sender: FDA-Public Use
  Company Number: US-BRISTOL-MYERS SQUIBB COMPANY-12769550

PATIENT
  Age: 64 Year
  Sex: Female
  Weight: 64 kg

DRUGS (20)
  1. CETUXIMAB [Suspect]
     Indication: COLORECTAL CANCER
     Dosage: THIS WAS PT'S FIRST DOSE.  400 MG/M2=684 MG
     Route: 042
     Dates: start: 20041116, end: 20041116
  2. OXALIPLATIN [Suspect]
     Indication: COLORECTAL CANCER
     Dosage: THIS WAS PT'S FIRST DOSE.  85 MG/M2=145 MG
     Route: 042
     Dates: start: 20041116, end: 20041116
  3. FLUOROURACIL [Suspect]
     Indication: COLORECTAL CANCER
     Dosage: 400 MG/M2 (684 MG) IVP FOLLOWED BY 2400 MG/M2 (4104 MG) CONTINUOUS INFUSION
     Route: 042
     Dates: start: 20041116, end: 20041117
  4. FLUOROURACIL [Suspect]
     Route: 042
     Dates: start: 20041116, end: 20041117
  5. LEUCOVORIN CALCIUM [Suspect]
     Indication: COLORECTAL CANCER
     Dosage: THIS WAS PT'S FIRST DOSE.
     Route: 042
     Dates: start: 20041116, end: 20041116
  6. AMITRIPTYLINE HCL [Concomitant]
  7. PROTONIX [Concomitant]
     Indication: GASTROOESOPHAGEAL REFLUX DISEASE
  8. VITAMIN B-12 [Concomitant]
     Indication: VITAMIN SUPPLEMENTATION
  9. FOLIC ACID [Concomitant]
     Indication: VITAMIN SUPPLEMENTATION
  10. GLUCOSAMINE [Concomitant]
     Indication: ARTHRITIS
  11. MOBIC [Concomitant]
     Indication: ARTHRITIS
  12. PLAVIX [Concomitant]
     Indication: ATHEROSCLEROSIS
  13. ATENOLOL [Concomitant]
     Indication: BLOOD PRESSURE
  14. CALCIUM GLUCONATE [Concomitant]
     Indication: VITAMIN SUPPLEMENTATION
  15. PAXIL [Concomitant]
     Indication: DEPRESSION
  16. HYDROMORPHONE [Concomitant]
     Indication: PAIN
  17. DIAZEPAM [Concomitant]
     Indication: ANXIETY
  18. DILAUDID [Concomitant]
     Indication: PAIN PROPHYLAXIS
     Dates: start: 20041109
  19. LOVENOX [Concomitant]
     Indication: DEEP VEIN THROMBOSIS
  20. COUMADIN [Concomitant]

REACTIONS (7)
  - ABDOMINAL PAIN LOWER [None]
  - DEEP VEIN THROMBOSIS [None]
  - DELIRIUM [None]
  - FALL [None]
  - HAEMATEMESIS [None]
  - HAEMATOMA [None]
  - JOINT INJURY [None]
